FAERS Safety Report 22718953 (Version 4)
Quarter: 2023Q4

REPORT INFORMATION
  Report Type: Report from Study
  Country: GR (occurrence: GR)
  Receive Date: 20230718
  Receipt Date: 20231004
  Transmission Date: 20240109
  Serious: Yes (Hospitalization)
  Sender: FDA-Public Use
  Company Number: GR-ABBVIE-5310119

PATIENT
  Age: 82 Year
  Sex: Male

DRUGS (6)
  1. CARBIDOPA\LEVODOPA [Suspect]
     Active Substance: CARBIDOPA\LEVODOPA
     Indication: Parkinson^s disease
     Dosage: MORNING DOSE: 5.0ML; CONTINUOUS RATE: 5.0ML/H, 3.5ML/H(AFTER 18:00PM); EXTRA DOSE: 2.0ML
     Route: 050
     Dates: start: 20160309
  2. CARBIDOPA\LEVODOPA [Suspect]
     Active Substance: CARBIDOPA\LEVODOPA
     Dosage: MORNING DOSE: 4.0ML; CONTINUOUS RATE: 5.0ML/H; EXTRA DOSE: 2.0ML (24-HOUR ADMINISTRATION)
     Route: 050
  3. CARBIDOPA\LEVODOPA [Suspect]
     Active Substance: CARBIDOPA\LEVODOPA
     Dosage: MORNING DOSE: 5.0ML; CONTINUOUS RATE: 5.0ML/H, 3.5ML/H(AFTER 18:00PM); EXTRA DOSE: 2.0ML
     Route: 050
  4. CARBIDOPA\LEVODOPA [Suspect]
     Active Substance: CARBIDOPA\LEVODOPA
     Dosage: MORNING DOSE: 4.0ML; CONTINUOUS RATE: 5.0ML/H; EXTRA DOSE: 2.0ML(24-HOUR ADMINISTRATION)
     Route: 050
  5. CARBIDOPA\LEVODOPA [Suspect]
     Active Substance: CARBIDOPA\LEVODOPA
     Dosage: MORNING DOSE: 4.0ML; CONTINUOUS RATE: 5.0ML/H; EXTRA DOSE: 2.0ML(24-HOUR ADMINISTRATION)
     Route: 050
     Dates: end: 20230717
  6. BENSERAZIDE HYDROCHLORIDE\LEVODOPA [Concomitant]
     Active Substance: BENSERAZIDE HYDROCHLORIDE\LEVODOPA
     Indication: Product used for unknown indication
     Dosage: UNIT DOSE: ONE AND A HALF OF FORM STRENGTH (250 MG)
     Route: 048

REACTIONS (5)
  - Embedded device [Recovered/Resolved]
  - Device physical property issue [Unknown]
  - Stoma site discharge [Recovered/Resolved]
  - Pneumonia [Recovered/Resolved]
  - Stoma site haemorrhage [Recovered/Resolved]

NARRATIVE: CASE EVENT DATE: 20230623
